FAERS Safety Report 17730728 (Version 2)
Quarter: 2025Q3

REPORT INFORMATION
  Report Type: Spontaneous
  Country: EU (occurrence: EU)
  Receive Date: 20200430
  Receipt Date: 20250722
  Transmission Date: 20251021
  Serious: Yes (Life-Threatening, Hospitalization, Other)
  Sender: MYLAN
  Company Number: EU-KRKA-IT2020K04948LIT

PATIENT
  Age: 37 Year
  Sex: Male

DRUGS (4)
  1. ARIPIPRAZOLE [Suspect]
     Active Substance: ARIPIPRAZOLE
     Indication: Schizoid personality disorder
     Dosage: 10 MILLIGRAM, QD (10 MILLIGRAM, DAILY  )
  2. ARIPIPRAZOLE [Suspect]
     Active Substance: ARIPIPRAZOLE
     Dosage: 7.5 MILLIGRAM, QD (7.5 MILLIGRAM, DAILY  )
  3. PROPOFOL [Concomitant]
     Active Substance: PROPOFOL
     Indication: Sedative therapy
  4. MIDAZOLAM [Concomitant]
     Active Substance: MIDAZOLAM
     Indication: Sedative therapy

REACTIONS (5)
  - Multiple organ dysfunction syndrome [Unknown]
  - Cytotoxic lesions of corpus callosum [Unknown]
  - Encephalitis [Unknown]
  - Mania [Recovering/Resolving]
  - Therapeutic product effect incomplete [Unknown]
